FAERS Safety Report 13926133 (Version 4)
Quarter: 2017Q4

REPORT INFORMATION
  Report Type: Spontaneous
  Country: FR (occurrence: FR)
  Receive Date: 20170831
  Receipt Date: 20171102
  Transmission Date: 20180320
  Serious: Yes (Hospitalization, Other)
  Sender: FDA-Public Use
  Company Number: FR-PFIZER INC-2017369031

PATIENT
  Age: 61 Year
  Sex: Male
  Weight: 71 kg

DRUGS (3)
  1. XALATAN [Concomitant]
     Active Substance: LATANOPROST
     Indication: INTRAOCULAR PRESSURE INCREASED
     Dosage: UNK
     Dates: start: 1999
  2. SEROPLEX [Concomitant]
     Active Substance: ESCITALOPRAM OXALATE
     Dosage: UNK
     Route: 048
  3. VIAGRA [Suspect]
     Active Substance: SILDENAFIL CITRATE
     Dosage: 25 MG, FOR A TOTAL OF 3 INTAKES ON AN INTERVAL OF ONE MONTH AND A HALF
     Dates: start: 2010

REACTIONS (11)
  - Vision blurred [Not Recovered/Not Resolved]
  - Vitreous disorder [Recovered/Resolved]
  - Depression [Unknown]
  - Tinnitus [Unknown]
  - Condition aggravated [Not Recovered/Not Resolved]
  - Amnesia [Unknown]
  - Lacrimal disorder [Unknown]
  - Astigmatism [Unknown]
  - Visual impairment [Not Recovered/Not Resolved]
  - Glare [Not Recovered/Not Resolved]
  - Drug ineffective [Unknown]

NARRATIVE: CASE EVENT DATE: 2010
